FAERS Safety Report 15982371 (Version 1)
Quarter: 2019Q1

REPORT INFORMATION
  Report Type: Spontaneous
  Country: MX (occurrence: MX)
  Receive Date: 20190219
  Receipt Date: 20190219
  Transmission Date: 20190418
  Serious: Yes (Disabling)
  Sender: FDA-Public Use
  Company Number: MX-ASTRAZENECA-2019SE25750

PATIENT
  Age: 18641 Day
  Sex: Female

DRUGS (1)
  1. XIGDUO XR [Suspect]
     Active Substance: DAPAGLIFLOZIN PROPANEDIOL\METFORMIN HYDROCHLORIDE
     Indication: DIABETES MELLITUS
     Route: 048
     Dates: start: 20181204, end: 20190114

REACTIONS (3)
  - Vulvovaginal erythema [Unknown]
  - Genital pain [Unknown]
  - Flushing [Unknown]

NARRATIVE: CASE EVENT DATE: 20190114
